FAERS Safety Report 12059545 (Version 2)
Quarter: 2016Q2

REPORT INFORMATION
  Report Type: Spontaneous
  Country: GB (occurrence: GB)
  Receive Date: 20160210
  Receipt Date: 20160408
  Transmission Date: 20160815
  Serious: Yes (Hospitalization, Other)
  Sender: FDA-Public Use
  Company Number: GB-AMGEN-GBRSP2016013710

PATIENT
  Sex: Male

DRUGS (1)
  1. ARANESP [Suspect]
     Active Substance: DARBEPOETIN ALFA
     Indication: PRODUCT USED FOR UNKNOWN INDICATION
     Dosage: 40 MCG/0.4 ML
     Route: 065

REACTIONS (8)
  - Malaise [Unknown]
  - Confusional state [Unknown]
  - Dyspnoea [Unknown]
  - Hypotension [Unknown]
  - Fall [Unknown]
  - Heart transplant [Unknown]
  - Pain [Unknown]
  - Dysphonia [Unknown]
